FAERS Safety Report 7708831-7 (Version None)
Quarter: 2011Q3

REPORT INFORMATION
  Report Type: 
  Country: None (occurrence: None)
  Receive Date: 20110825
  Receipt Date: 20110817
  Transmission Date: 20111222
  Serious: Yes (Other)
  Sender: FDA-Public Use
  Company Number: US-PFIZER INC-2011190792

PATIENT
  Sex: Female

DRUGS (3)
  1. GLUCOTROL [Suspect]
     Dosage: UNK
  2. GLUCOTROL XL [Suspect]
     Dosage: UNK
  3. LIPITOR [Suspect]
     Dosage: UNK

REACTIONS (2)
  - PANCREATITIS ACUTE [None]
  - DIABETES MELLITUS [None]
